FAERS Safety Report 8911911 (Version 1)
Quarter: 2012Q4

REPORT INFORMATION
  Report Type: 
  Country: US (occurrence: US)
  Receive Date: 20121115
  Receipt Date: 20121115
  Transmission Date: 20130627
  Serious: No
  Sender: FDA-Public Use
  Company Number: US-TEVA-370294USA

PATIENT
  Age: 52 Year
  Sex: Male
  Weight: 63.56 kg

DRUGS (5)
  1. QVAR [Suspect]
     Indication: ASTHMA
     Dosage: 80 mcg (2 puffs bid)
     Dates: start: 20121023, end: 20121023
  2. SIMVASTATIN [Concomitant]
  3. METFORMIN [Concomitant]
  4. VENTOLIN [Concomitant]
  5. ASA [Concomitant]

REACTIONS (2)
  - Dyspnoea [Recovered/Resolved]
  - Palpitations [Recovered/Resolved]
